FAERS Safety Report 4469442-2 (Version None)
Quarter: 2004Q4

REPORT INFORMATION
  Report Type: 
  Country: None (occurrence: None)
  Receive Date: 20041005
  Receipt Date: 20040924
  Transmission Date: 20050328
  Serious: Yes (Hospitalization, Other)
  Sender: FDA-Public Use
  Company Number: HQWYE264724SEP04

PATIENT
  Age: 41 Year
  Sex: Male
  Weight: 73.09 kg

DRUGS (11)
  1. RAPAMUNE [Suspect]
     Indication: PROPHYLAXIS AGAINST TRANSPLANT REJECTION
     Dosage: VARIABLE DOSE (3 - 4 MG DAILY), ORAL
     Route: 048
     Dates: start: 20040803
  2. CELLCEPT [Concomitant]
  3. PREDNISONE [Concomitant]
  4. DIFLUCAN [Concomitant]
  5. BACTRIM [Concomitant]
  6. VALCYTE [Concomitant]
  7. ZANTAC [Concomitant]
  8. METOPROLOL TARTRATE [Concomitant]
  9. ASPIRIN [Concomitant]
  10. NORVASC [Concomitant]
  11. DAPSONE [Concomitant]

REACTIONS (6)
  - BLOOD CREATININE INCREASED [None]
  - BLOOD UREA INCREASED [None]
  - HAEMATOCRIT DECREASED [None]
  - HAEMOGLOBIN DECREASED [None]
  - LARGE INTESTINAL ULCER [None]
  - WHITE BLOOD CELL COUNT DECREASED [None]
